FAERS Safety Report 21164607 (Version 20)
Quarter: 2024Q2

REPORT INFORMATION
  Report Type: Report from Study
  Country: US (occurrence: US)
  Receive Date: 20220803
  Receipt Date: 20240618
  Transmission Date: 20240716
  Serious: Yes (Hospitalization, Other)
  Sender: FDA-Public Use
  Company Number: US-NOVARTISTESTPH-NVSC2022US174757

PATIENT
  Age: 51 Year
  Sex: Female

DRUGS (2)
  1. KESIMPTA [Suspect]
     Active Substance: OFATUMUMAB
     Indication: Relapsing multiple sclerosis
     Dosage: 20 MG, QMO
     Route: 058
     Dates: start: 20220717
  2. KESIMPTA [Suspect]
     Active Substance: OFATUMUMAB
     Dosage: 20 MG, QMO
     Route: 065

REACTIONS (14)
  - Relapsing multiple sclerosis [Unknown]
  - COVID-19 [Unknown]
  - Hypopnoea [Unknown]
  - Pyrexia [Unknown]
  - Dyspnoea [Unknown]
  - Pain [Unknown]
  - Migraine [Not Recovered/Not Resolved]
  - Stress [Unknown]
  - Ankle fracture [Unknown]
  - Weight bearing difficulty [Unknown]
  - Device malfunction [Unknown]
  - Fumbling [Unknown]
  - Bone density abnormal [Unknown]
  - Memory impairment [Unknown]

NARRATIVE: CASE EVENT DATE: 20220801
